FAERS Safety Report 15478709 (Version 1)
Quarter: 2018Q4

REPORT INFORMATION
  Report Type: Spontaneous
  Country: CA (occurrence: CA)
  Receive Date: 20181009
  Receipt Date: 20181009
  Transmission Date: 20190205
  Serious: Yes (Life-Threatening, Hospitalization, Other)
  Sender: FDA-Public Use
  Company Number: CA-PFIZER INC-2018403558

PATIENT
  Age: 56 Year
  Sex: Female

DRUGS (1)
  1. SULFASALAZINE. [Suspect]
     Active Substance: SULFASALAZINE

REACTIONS (9)
  - Lymphadenopathy [Unknown]
  - Skin disorder [Unknown]
  - Dysphonia [Unknown]
  - Balance disorder [Recovered/Resolved]
  - Hepatic enzyme abnormal [Unknown]
  - Pain in extremity [Unknown]
  - Hypersensitivity [Unknown]
  - Stevens-Johnson syndrome [Unknown]
  - Nerve injury [Unknown]
